FAERS Safety Report 6836693-9 (Version None)
Quarter: 2010Q3

REPORT INFORMATION
  Report Type: 
  Country: None (occurrence: None)
  Receive Date: 20100708
  Receipt Date: 20100701
  Transmission Date: 20110219
  Serious: Yes (Disabling)
  Sender: FDA-Public Use
  Company Number: DSA_43435_2010

PATIENT
  Sex: Female

DRUGS (6)
  1. WELLBUTRIN XL [Suspect]
     Indication: FIBROMYALGIA
     Dosage: (100 MG QD ORAL), (150 MG QD ORAL)
     Route: 048
     Dates: end: 20090101
  2. WELLBUTRIN XL [Suspect]
     Indication: FIBROMYALGIA
     Dosage: (100 MG QD ORAL), (150 MG QD ORAL)
     Route: 048
     Dates: start: 19970101
  3. LEXAPRO [Suspect]
     Indication: PRODUCT USED FOR UNKNOWN INDICATION
     Dosage: (DF)
     Dates: end: 20090101
  4. PERCOCET [Concomitant]
  5. KLONOPIN [Concomitant]
  6. TRAZODONE [Concomitant]

REACTIONS (7)
  - CONFUSIONAL STATE [None]
  - FALL [None]
  - FIBROMYALGIA [None]
  - IMPAIRED WORK ABILITY [None]
  - LOSS OF EMPLOYMENT [None]
  - UNEVALUABLE EVENT [None]
  - WEIGHT INCREASED [None]
